FAERS Safety Report 6023763-0 (Version None)
Quarter: 2008Q4

REPORT INFORMATION
  Report Type: 
  Country: None (occurrence: None)
  Receive Date: 20081223
  Receipt Date: 20081208
  Transmission Date: 20090506
  Serious: Yes (Hospitalization)
  Sender: FDA-Public Use
  Company Number: 230065M08DEU

PATIENT
  Age: 44 Year
  Sex: Female

DRUGS (11)
  1. REBIF [Suspect]
     Indication: MULTIPLE SCLEROSIS
     Dosage: 44, 3 IN 1 WEEKS, SUBCUTANEOUS
     Route: 058
     Dates: start: 20040501, end: 20080712
  2. ACETYLSALICYLIC ACID SRT [Concomitant]
  3. ISMO [Concomitant]
  4. PLAVIX [Concomitant]
  5. METOPROLOL SUCCINATE [Concomitant]
  6. ATORVASTATIN CALCIUM [Concomitant]
  7. OPIPRAMOL (OPIPRAMOL) [Concomitant]
  8. NEXIUM [Concomitant]
  9. INSPRA [Concomitant]
  10. TORSEMIDE [Concomitant]
  11. OMACOR [Concomitant]

REACTIONS (4)
  - AGITATION [None]
  - CORONARY ARTERY STENOSIS [None]
  - MYOCARDIAL INFARCTION [None]
  - TACHYCARDIA [None]
